FAERS Safety Report 25599892 (Version 4)
Quarter: 2025Q4

REPORT INFORMATION
  Report Type: Spontaneous
  Country: US (occurrence: US)
  Receive Date: 20250724
  Receipt Date: 20251119
  Transmission Date: 20260118
  Serious: Yes (Hospitalization)
  Sender: GRIFOLS
  Company Number: US-IGSA-BIG0036665

PATIENT
  Age: 59 Year
  Sex: Female
  Weight: 58.503 kg

DRUGS (22)
  1. PROLASTIN-C LIQUID [Suspect]
     Active Substance: .ALPHA.1-PROTEINASE INHIBITOR HUMAN
     Indication: Alpha-1 antitrypsin deficiency
     Dosage: 3213 MILLIGRAM, Q.WK.
     Route: 042
  2. PROLASTIN-C LIQUID [Suspect]
     Active Substance: .ALPHA.1-PROTEINASE INHIBITOR HUMAN
     Dosage: 3904 MILLIGRAM, Q.WK.
     Route: 042
  3. PROLASTIN-C LIQUID [Suspect]
     Active Substance: .ALPHA.1-PROTEINASE INHIBITOR HUMAN
     Dosage: 3222 MILLIGRAM, Q.WK.
     Route: 042
  4. ACETAMINOPHEN [Concomitant]
     Active Substance: ACETAMINOPHEN
     Dosage: 500 MILLIGRAM
     Route: 048
  5. ALBUTEROL SULFATE [Concomitant]
     Active Substance: ALBUTEROL SULFATE
  6. NEURONTIN [Concomitant]
     Active Substance: GABAPENTIN
     Dosage: 400 MILLIGRAM
     Route: 048
  7. CYCLOBENZAPRINE HYDROCHLORIDE [Concomitant]
     Active Substance: CYCLOBENZAPRINE HYDROCHLORIDE
     Dosage: 5 MILLIGRAM
     Route: 048
  8. TOPIRAMATE [Concomitant]
     Active Substance: TOPIRAMATE
     Dosage: 25 MILLIGRAM
     Route: 048
  9. RIZATRIPTAN [Concomitant]
     Active Substance: RIZATRIPTAN
     Dosage: 10 MILLIGRAM
     Route: 048
  10. ONDANSETRON HYDROCHLORIDE [Concomitant]
     Active Substance: ONDANSETRON HYDROCHLORIDE
  11. DIPHENHYDRAMINE HYDROCHLORIDE [Concomitant]
     Active Substance: DIPHENHYDRAMINE HYDROCHLORIDE
     Dosage: 25 MILLIGRAM
     Route: 048
  12. ELLZIA PAK [Concomitant]
     Active Substance: DIMETHICONE\TRIAMCINOLONE ACETONIDE
     Dosage: 0.1 %-5 %
  13. FLUTICASONE PROPIONATE [Concomitant]
     Active Substance: FLUTICASONE PROPIONATE
     Dosage: 50 MICROGRAM
  14. MICONAZOLE NITRATE [Concomitant]
     Active Substance: MICONAZOLE NITRATE
     Dosage: 2%
     Route: 061
  15. TRIAMCINOLONE ACETONIDE [Concomitant]
     Active Substance: TRIAMCINOLONE ACETONIDE
     Dosage: 0.5 %
     Route: 061
  16. TACROLIMUS [Concomitant]
     Active Substance: TACROLIMUS
     Dosage: 0.03 %
  17. SERTRALINE HYDROCHLORIDE [Concomitant]
     Active Substance: SERTRALINE HYDROCHLORIDE
     Dosage: 50 MILLIGRAM
     Route: 048
  18. HYDROCORTISONE [Concomitant]
     Active Substance: HYDROCORTISONE
  19. ALOE 99 [Concomitant]
     Dosage: 0.5 %
  20. DIPHENHYDRAMINE HYDROCHLORIDE [Concomitant]
     Active Substance: DIPHENHYDRAMINE HYDROCHLORIDE
  21. EPINEPHRINE [Concomitant]
     Active Substance: EPINEPHRINE
  22. SODIUM CHLORIDE [Concomitant]
     Active Substance: SODIUM CHLORIDE

REACTIONS (8)
  - Illness [Unknown]
  - Intentional dose omission [Unknown]
  - Malaise [Unknown]
  - Skin burning sensation [Unknown]
  - Therapy interrupted [Unknown]
  - Herpes zoster [Unknown]
  - Varicella [Unknown]
  - Headache [Unknown]

NARRATIVE: CASE EVENT DATE: 20250301
